FAERS Safety Report 9729210 (Version 1)
Quarter: 2013Q4

REPORT INFORMATION
  Report Type: Spontaneous
  Country: US (occurrence: None)
  Receive Date: 20131203
  Receipt Date: 20131203
  Transmission Date: 20140711
  Serious: Yes (Other)
  Sender: FDA-Public Use
  Company Number: None

PATIENT
  Age: 43 Year
  Sex: Female

DRUGS (6)
  1. TECFIDERA, 240 MG, BIOGEN IDEC [Suspect]
     Indication: RELAPSING-REMITTING MULTIPLE SCLEROSIS
     Route: 048
     Dates: start: 20130821, end: 20131001
  2. BACLOFEN [Concomitant]
  3. LORATADINE [Concomitant]
  4. FLUTICASONE NS [Concomitant]
  5. ALBUTEROL HFA [Concomitant]
  6. IRON [Concomitant]

REACTIONS (2)
  - Liver function test abnormal [None]
  - Pruritus [None]
